FAERS Safety Report 17308395 (Version 4)
Quarter: 2020Q1

REPORT INFORMATION
  Report Type: Spontaneous
  Country: FR (occurrence: FR)
  Receive Date: 20200123
  Receipt Date: 20200220
  Transmission Date: 20200409
  Serious: Yes (Other)
  Sender: FDA-Public Use
  Company Number: FR-TEVA-2020-FR-1171476

PATIENT
  Age: 65 Year
  Sex: Female
  Weight: 74.8 kg

DRUGS (15)
  1. VANCOMYCINE [Suspect]
     Active Substance: VANCOMYCIN
     Indication: DEVICE RELATED INFECTION
     Dosage: 2.5 GRAM, QD
     Route: 042
     Dates: start: 20191218, end: 20191219
  2. CUBICIN [Suspect]
     Active Substance: DAPTOMYCIN
     Indication: DEVICE RELATED INFECTION
     Dosage: 850 MG, QD
     Route: 042
     Dates: start: 20191212, end: 20191217
  3. RIFAMPICINE [Suspect]
     Active Substance: RIFAMPIN
     Indication: DEVICE RELATED INFECTION
     Dosage: 1200 MG, QD
     Route: 048
     Dates: start: 20191212, end: 20191217
  4. INORIAL 20 MG, COMPRIM? [Concomitant]
     Active Substance: BILASTINE
     Route: 065
  5. FLUOXETINE (CHLORHYDRATE DE) [Concomitant]
     Active Substance: FLUOXETINE HYDROCHLORIDE
  6. VANCOMYCINE [Suspect]
     Active Substance: VANCOMYCIN
     Dosage: 2.5 GRAM DAILY; 2.5 G, QD
     Route: 042
  7. PANTOPRAZOLE [Concomitant]
     Active Substance: PANTOPRAZOLE
  8. ETORICOXIB. [Concomitant]
     Active Substance: ETORICOXIB
  9. BISOPROLOL (FUMARATE DE) [Concomitant]
     Active Substance: BISOPROLOL FUMARATE
  10. ESTRADIOL. [Concomitant]
     Active Substance: ESTRADIOL
  11. AMLODIPINE [Concomitant]
     Active Substance: AMLODIPINE BESYLATE
  12. VANCOMYCINE [Suspect]
     Active Substance: VANCOMYCIN
     Dosage: UNK??????????NOT KNOWN
     Route: 042
     Dates: start: 20191122, end: 20191212
  13. ESIDREX [Concomitant]
     Active Substance: HYDROCHLOROTHIAZIDE
  14. TAHOR [Concomitant]
     Active Substance: ATORVASTATIN CALCIUM
  15. LEVOTHYROX [Concomitant]
     Active Substance: LEVOTHYROXINE

REACTIONS (5)
  - Drug reaction with eosinophilia and systemic symptoms [Recovering/Resolving]
  - Renal failure [Recovering/Resolving]
  - Rash [Recovered/Resolved]
  - Eosinophilia [Recovered/Resolved]
  - Hepatic failure [Recovering/Resolving]

NARRATIVE: CASE EVENT DATE: 20191217
